FAERS Safety Report 17581179 (Version 1)
Quarter: 2020Q1

REPORT INFORMATION
  Report Type: Spontaneous
  Country: US (occurrence: US)
  Receive Date: 20200325
  Receipt Date: 20200325
  Transmission Date: 20200409
  Serious: Yes (Hospitalization, Other)
  Sender: FDA-Public Use
  Company Number: US-ACORDA-ACO_164438_2020

PATIENT
  Age: 62 Year
  Sex: Female

DRUGS (3)
  1. AVONEX PEN [Suspect]
     Active Substance: INTERFERON BETA-1A
     Indication: MULTIPLE SCLEROSIS
     Route: 030
     Dates: start: 1995, end: 2011
  2. AVONEX [Suspect]
     Active Substance: INTERFERON BETA-1A
     Indication: MULTIPLE SCLEROSIS
     Route: 065
     Dates: start: 19970508
  3. AMPYRA [Suspect]
     Active Substance: DALFAMPRIDINE
     Indication: GAIT DISTURBANCE
     Route: 065

REACTIONS (6)
  - Impaired self-care [Unknown]
  - Seizure [Recovered/Resolved]
  - Muscle spasms [Unknown]
  - Motor dysfunction [Unknown]
  - Aphasia [Unknown]
  - Drooling [Unknown]

NARRATIVE: CASE EVENT DATE: 201101
